FAERS Safety Report 6273437-6 (Version None)
Quarter: 2009Q3

REPORT INFORMATION
  Report Type: 
  Country: None (occurrence: None)
  Receive Date: 20090720
  Receipt Date: 20090708
  Transmission Date: 20100115
  Serious: Yes (Other)
  Sender: FDA-Public Use
  Company Number: PHHY2009JP28264

PATIENT

DRUGS (1)
  1. NEORAL [Suspect]
     Indication: BEHCET'S SYNDROME
     Route: 048

REACTIONS (4)
  - CONFUSIONAL STATE [None]
  - PNEUMOCYSTIS JIROVECI PNEUMONIA [None]
  - SCHIZOPHRENIA [None]
  - SJOGREN'S SYNDROME [None]
